FAERS Safety Report 7055830-7 (Version None)
Quarter: 2010Q4

REPORT INFORMATION
  Report Type: 
  Country: None (occurrence: None)
  Receive Date: 20101018
  Receipt Date: 20101006
  Transmission Date: 20110411
  Serious: No
  Sender: FDA-Public Use
  Company Number: 201010015

PATIENT
  Sex: Male

DRUGS (1)
  1. TESTIM [Suspect]
     Indication: ANDROGEN DEFICIENCY

REACTIONS (2)
  - MALIGNANT NEOPLASM PROGRESSION [None]
  - PROSTATE CANCER [None]
